FAERS Safety Report 9642650 (Version 2)
Quarter: 2013Q4

REPORT INFORMATION
  Report Type: Spontaneous
  Country: US (occurrence: US)
  Receive Date: 20131024
  Receipt Date: 20131105
  Transmission Date: 20140711
  Serious: No
  Sender: FDA-Public Use
  Company Number: US-PFIZER INC-2013302236

PATIENT
  Sex: Male

DRUGS (1)
  1. ZOLOFT [Suspect]
     Dosage: UNK

REACTIONS (5)
  - Insomnia [Unknown]
  - Abdominal discomfort [Unknown]
  - Nervousness [Unknown]
  - Appetite disorder [Unknown]
  - Restlessness [Unknown]
